FAERS Safety Report 20942902 (Version 1)
Quarter: 2022Q2

REPORT INFORMATION
  Report Type: Spontaneous
  Country: US (occurrence: US)
  Receive Date: 20220610
  Receipt Date: 20220610
  Transmission Date: 20220721
  Serious: No
  Sender: FDA-Public Use
  Company Number: US-ALLERGAN-2132232US

PATIENT
  Sex: Female

DRUGS (1)
  1. VIBERZI [Suspect]
     Active Substance: ELUXADOLINE
     Indication: Product used for unknown indication

REACTIONS (2)
  - Wrong technique in product usage process [Unknown]
  - Inappropriate schedule of product administration [Unknown]
